FAERS Safety Report 25854706 (Version 1)
Quarter: 2025Q3

REPORT INFORMATION
  Report Type: Spontaneous
  Country: US (occurrence: US)
  Receive Date: 20250927
  Receipt Date: 20250927
  Transmission Date: 20251021
  Serious: No
  Sender: SANOFI AVENTIS
  Company Number: US-SA-2025SA285960

PATIENT
  Age: 43 Year
  Sex: Male

DRUGS (1)
  1. DUPIXENT [Suspect]
     Active Substance: DUPILUMAB
     Dosage: 300 MG, QW
     Route: 058

REACTIONS (5)
  - Injection site urticaria [Unknown]
  - Pruritus [Unknown]
  - Injection site swelling [Unknown]
  - Rash [Recovering/Resolving]
  - Hypersensitivity [Unknown]

NARRATIVE: CASE EVENT DATE: 20250901
